FAERS Safety Report 9016497 (Version 3)
Quarter: 2013Q1

REPORT INFORMATION
  Report Type: Report from Study
  Country: IT (occurrence: IT)
  Receive Date: 20130116
  Receipt Date: 20130328
  Transmission Date: 20140127
  Serious: Yes (Death, Hospitalization)
  Sender: FDA-Public Use
  Company Number: IT-TEVA-377314USA

PATIENT
  Age: 84 None
  Sex: Female
  Weight: 68 kg

DRUGS (10)
  1. TREANDA [Suspect]
     Route: 042
     Dates: start: 20121008
  2. LOBIVON [Concomitant]
  3. PAROXETINE [Concomitant]
  4. OMEPRAZOLE [Concomitant]
  5. BACTRIM [Concomitant]
  6. VALACICLOVIR [Concomitant]
  7. DELTACORTENE [Concomitant]
  8. ALPRAZOLAM [Concomitant]
  9. LANSOPRAZOLE [Concomitant]
  10. ALLOPURINOL [Concomitant]

REACTIONS (5)
  - Brain injury [Recovering/Resolving]
  - Fall [Recovering/Resolving]
  - Febrile neutropenia [Unknown]
  - Hyperbilirubinaemia [Unknown]
  - Disease progression [Fatal]
